FAERS Safety Report 6128911-X (Version None)
Quarter: 2009Q1

REPORT INFORMATION
  Report Type: 
  Country: None (occurrence: None)
  Receive Date: 20090324
  Receipt Date: 20090313
  Transmission Date: 20090719
  Serious: Yes (Other)
  Sender: FDA-Public Use
  Company Number: TW-RANBAXY-2008RR-20126

PATIENT
  Age: 37 Year
  Sex: Male

DRUGS (3)
  1. ZOPICLONE [Suspect]
     Indication: COMPLETED SUICIDE
     Dosage: 225 MG, UNK
     Route: 048
  2. ZOPICLONE [Suspect]
     Indication: OVERDOSE
  3. ZOLPIDEM [Suspect]

REACTIONS (4)
  - COMA [None]
  - DEPRESSED LEVEL OF CONSCIOUSNESS [None]
  - DRUG INTERACTION [None]
  - OVERDOSE [None]
